FAERS Safety Report 23378873 (Version 1)
Quarter: 2024Q1

REPORT INFORMATION
  Report Type: Spontaneous
  Country: AT (occurrence: AT)
  Receive Date: 20240108
  Receipt Date: 20240108
  Transmission Date: 20240410
  Serious: Yes (Hospitalization)
  Sender: FDA-Public Use
  Company Number: AT-BAXTER-2023BAX038423

PATIENT
  Age: 59 Year
  Sex: Male
  Weight: 76 kg

DRUGS (28)
  1. DOXORUBICIN HYDROCHLORIDE [Suspect]
     Active Substance: DOXORUBICIN HYDROCHLORIDE
     Indication: Diffuse large B-cell lymphoma
     Dosage: 96 MG, CYCLIC, C1-6, D1; 21 DAY CYCLES, EVERY 3 WEEKS
     Route: 042
     Dates: start: 20231019, end: 20231019
  2. DOXORUBICIN HYDROCHLORIDE [Suspect]
     Active Substance: DOXORUBICIN HYDROCHLORIDE
     Dosage: 94 MG, CYCLIC, C1-6, D1; 21 DAY CYCLES, EVERY 3 WEEKS
     Route: 042
     Dates: start: 20231113
  3. VINCRISTINE [Suspect]
     Active Substance: VINCRISTINE
     Indication: Diffuse large B-cell lymphoma
     Dosage: 2 MG, CYCLIC,  C1-6, D1; 21 DAY CYCLES, EVERY 3 WEEKS
     Route: 042
     Dates: start: 20231019, end: 20231019
  4. VINCRISTINE [Suspect]
     Active Substance: VINCRISTINE
     Dosage: 2 MG, CYCLIC, C1-6, D1; 21 DAY CYCLES, EVERY 3 WEEKS
     Route: 042
     Dates: start: 20231113
  5. RITUXIMAB [Suspect]
     Active Substance: RITUXIMAB
     Indication: Diffuse large B-cell lymphoma
     Dosage: 730 MG, CYCLIC, C1-6, D1; 21 DAY CYCLES, EVERY 3 WEEKS
     Route: 042
     Dates: start: 20231019, end: 20231019
  6. RITUXIMAB [Suspect]
     Active Substance: RITUXIMAB
     Dosage: 710 MG, CYCLIC, C1-6, D1; 21 DAY CYCLES, EVERY 3 WEEKS
     Route: 042
     Dates: start: 20231113
  7. PREDNISONE [Suspect]
     Active Substance: PREDNISONE
     Indication: Diffuse large B-cell lymphoma
     Dosage: 100 MG, CYCLIC, C1-6, DAY 1-5 OF 21-DAY CYCLES, EVERY 1 DAYS
     Route: 048
     Dates: start: 20231019, end: 20231019
  8. PREDNISONE [Suspect]
     Active Substance: PREDNISONE
     Dosage: 100 MG, CYCLIC,  C1-6, DAY 1-5 OF 21-DAY CYCLES, EVERY 1 DAYS
     Route: 048
     Dates: start: 20231113
  9. MESNA [Suspect]
     Active Substance: MESNA
     Indication: Urinary tract disorder prophylaxis
     Dosage: 400 MG, EVERY 3 WEEKS
     Dates: start: 20231019
  10. CYCLOPHOSPHAMIDE [Suspect]
     Active Substance: CYCLOPHOSPHAMIDE
     Indication: Diffuse large B-cell lymphoma
     Dosage: 1460 MG, CYCLIC, CL-6, DL; 21 DAY CYCLES, EVERY 3 WEEKS
     Route: 042
     Dates: start: 20231019, end: 20231019
  11. CYCLOPHOSPHAMIDE [Suspect]
     Active Substance: CYCLOPHOSPHAMIDE
     Dosage: 1420 MG, CYCLIC,  CL-6, DL; 21 DAY CYCLES, EVERY 3 WEEKS
     Route: 042
     Dates: start: 20231113
  12. EPCORITAMAB [Suspect]
     Active Substance: EPCORITAMAB
     Indication: Diffuse large B-cell lymphoma
     Dosage: 0.16 MG, CYCLIC, PRIMING DOSE CL , D1, TOTAL
     Route: 058
     Dates: start: 20231019, end: 20231019
  13. EPCORITAMAB [Suspect]
     Active Substance: EPCORITAMAB
     Dosage: 0.8 MG, CYCLIC,  INTERMEDIATE DOSE C1 D8, TOTAL
     Route: 058
     Dates: start: 20231026, end: 20231026
  14. EPCORITAMAB [Suspect]
     Active Substance: EPCORITAMAB
     Dosage: 48 MG, CYCLIC, FULL DOSE C1, D15, TOTAL
     Route: 058
     Dates: start: 20231102, end: 20231102
  15. EPCORITAMAB [Suspect]
     Active Substance: EPCORITAMAB
     Dosage: 48 MG, WEEKLY
     Route: 058
     Dates: start: 20231113, end: 20231113
  16. EPCORITAMAB [Suspect]
     Active Substance: EPCORITAMAB
     Dosage: 48 MG, WEEKLY
     Route: 058
     Dates: start: 20231127
  17. SULFAMETROLE\TRIMETHOPRIM [Concomitant]
     Active Substance: SULFAMETROLE\TRIMETHOPRIM
     Indication: Antifungal prophylaxis
     Dosage: 1 TABLET, 3/WEEKS
     Dates: start: 20231019
  18. LEVOCETIRIZINE DIHYDROCHLORIDE [Concomitant]
     Active Substance: LEVOCETIRIZINE DIHYDROCHLORIDE
     Indication: Antiallergic therapy
     Dosage: 5 MG, EVERY 1 WEEKS
     Dates: start: 20231019
  19. FOLIC ACID [Concomitant]
     Active Substance: FOLIC ACID
     Indication: Folate deficiency
     Dosage: 5 MG, EVERY 1 WEEKS
     Dates: start: 20231025
  20. LIPEGFILGRASTIM [Concomitant]
     Active Substance: LIPEGFILGRASTIM
     Indication: Prophylaxis
     Dosage: 6 MG, EVERY 1 DAYS
     Dates: start: 20231021, end: 20231021
  21. PANTOPRAZOLE SODIUM [Concomitant]
     Active Substance: PANTOPRAZOLE SODIUM
     Indication: Prophylaxis of nausea and vomiting
     Dosage: 20 MG, EVERY 1 DAYS
     Dates: start: 20231019
  22. CHOLECALCIFEROL [Concomitant]
     Active Substance: CHOLECALCIFEROL
     Indication: Vitamin D deficiency
     Dosage: 40 DROPS, EVERY 1 WEEKS
     Dates: start: 20231018
  23. ACETAMINOPHEN [Concomitant]
     Active Substance: ACETAMINOPHEN
     Indication: Antipyresis
     Dosage: 1000 MG, EVERY 1 WEEKS
     Dates: start: 20231019
  24. VALACYCLOVIR HYDROCHLORIDE [Concomitant]
     Active Substance: VALACYCLOVIR HYDROCHLORIDE
     Indication: Antiviral prophylaxis
     Dosage: 500 MG, 2/DAYS
     Dates: start: 20231019
  25. ZOFRAN [Concomitant]
     Active Substance: ONDANSETRON HYDROCHLORIDE
     Indication: Prophylaxis of nausea and vomiting
     Dosage: 8 MG, AS NECESSARY
     Dates: start: 20231024
  26. DEXAMETHASONE [Concomitant]
     Active Substance: DEXAMETHASONE
     Indication: Prophylaxis
     Dosage: 16 MG, EVERY 1 DAYS
     Dates: start: 20231019, end: 20231022
  27. DEXAMETHASONE [Concomitant]
     Active Substance: DEXAMETHASONE
     Dosage: 16 MG, EVERY 1 DAYS
     Dates: start: 20231102, end: 20231105
  28. METOCLOPRAMIDE HYDROCHLORIDE [Concomitant]
     Active Substance: METOCLOPRAMIDE HYDROCHLORIDE
     Indication: Prophylaxis of nausea and vomiting
     Dosage: 1 DOSAGE FORM, 3/DAYS
     Dates: start: 20231020

REACTIONS (2)
  - Perichondritis [Recovered/Resolved]
  - C-reactive protein increased [Recovered/Resolved]

NARRATIVE: CASE EVENT DATE: 20231109
